FAERS Safety Report 9846621 (Version 1)
Quarter: 2014Q1

REPORT INFORMATION
  Report Type: Spontaneous
  Country: TW (occurrence: None)
  Receive Date: 20140122
  Receipt Date: 20140122
  Transmission Date: 20141002
  Serious: Yes (Death)
  Sender: FDA-Public Use
  Company Number: 2014P1000127

PATIENT
  Age: 94 Year
  Sex: Male

DRUGS (4)
  1. ETHAMBUTOL [Suspect]
     Indication: PULMONARY TUBERCULOSIS
  2. ISONIAZID [Suspect]
     Indication: PULMONARY TUBERCULOSIS
  3. PYRAZINAMIDE [Suspect]
     Indication: PULMONARY TUBERCULOSIS
  4. RIFAMPIN [Suspect]
     Indication: PULMONARY TUBERCULOSIS

REACTIONS (10)
  - Renal failure acute [None]
  - Hyperbilirubinaemia [None]
  - Respiratory failure [None]
  - Hepatic encephalopathy [None]
  - Coagulopathy [None]
  - Shock [None]
  - Haemodialysis [None]
  - Pneumonia [None]
  - Acute hepatic failure [None]
  - Altered state of consciousness [None]
